FAERS Safety Report 5648695-9 (Version None)
Quarter: 2008Q1

REPORT INFORMATION
  Report Type: 
  Country: None (occurrence: None)
  Receive Date: 20080304
  Receipt Date: 20080227
  Transmission Date: 20080703
  Serious: Yes (Hospitalization)
  Sender: FDA-Public Use
  Company Number: B0510692A

PATIENT
  Age: 34 Year
  Sex: Male

DRUGS (1)
  1. AMOXICILLIN + CLAVULANATE POTASSIUM [Suspect]
     Indication: TONSILLITIS BACTERIAL
     Route: 048
     Dates: start: 20080130, end: 20080130

REACTIONS (2)
  - PYREXIA [None]
  - URTICARIA [None]
